FAERS Safety Report 18442331 (Version 1)
Quarter: 2020Q4

REPORT INFORMATION
  Report Type: Spontaneous
  Country: US (occurrence: US)
  Receive Date: 20201029
  Receipt Date: 20201029
  Transmission Date: 20210114
  Serious: Yes (Other)
  Sender: FDA-Public Use
  Company Number: US-MYLANLABS-2020M1090502

PATIENT
  Age: 2 Year
  Sex: Female

DRUGS (4)
  1. LACOSAMIDE. [Suspect]
     Active Substance: LACOSAMIDE
     Indication: SEIZURE
     Dosage: SHE RECEIVED A TRIAL OF LACOSAMIDE
     Route: 065
  2. CORTISONE [Suspect]
     Active Substance: CORTISONE
     Indication: SEIZURE
     Dosage: SHE RECEIVED A TRIAL OF CORTISONE
     Route: 065
  3. VALPROIC ACID. [Suspect]
     Active Substance: VALPROIC ACID
     Indication: SEIZURE
     Dosage: RECEIVED A TRIAL OF VALPROIC ACID
     Route: 065
  4. LEVETIRACETAM. [Suspect]
     Active Substance: LEVETIRACETAM
     Indication: SEIZURE
     Dosage: SHE RECEIVED A TRIAL OF LEVETERICETAM
     Route: 065

REACTIONS (1)
  - Treatment failure [Unknown]
